FAERS Safety Report 6752059-4 (Version None)
Quarter: 2010Q2

REPORT INFORMATION
  Report Type: 
  Country: None (occurrence: None)
  Receive Date: 20100602
  Receipt Date: 20100524
  Transmission Date: 20101027
  Serious: Yes (Other)
  Sender: FDA-Public Use
  Company Number: US-ELI_LILLY_AND_COMPANY-US201005006594

PATIENT
  Sex: Male

DRUGS (4)
  1. HUMALOG MIX 75/25 [Suspect]
     Dosage: 35 U, EACH EVENING
  2. HUMALOG MIX 75/25 [Suspect]
     Dosage: 35 U, EACH EVENING
  3. METFORMIN HCL [Concomitant]
  4. ALTACE [Concomitant]

REACTIONS (4)
  - NAUSEA [None]
  - RETINAL HAEMORRHAGE [None]
  - VISUAL ACUITY REDUCED [None]
  - VOMITING [None]
